FAERS Safety Report 16082007 (Version 2)
Quarter: 2019Q3

REPORT INFORMATION
  Report Type: Spontaneous
  Country: US (occurrence: US)
  Receive Date: 20190317
  Receipt Date: 20190830
  Transmission Date: 20191004
  Serious: Yes (Other)
  Sender: FDA-Public Use
  Company Number: US-ALEXION PHARMACEUTICALS INC.-A201903970

PATIENT
  Age: 27 Month
  Sex: Male
  Weight: 5.41 kg

DRUGS (4)
  1. KANUMA [Suspect]
     Active Substance: SEBELIPASE ALFA
     Dosage: 1 MG/KG, UNK
     Route: 065
  2. KANUMA [Suspect]
     Active Substance: SEBELIPASE ALFA
     Dosage: 5 MG/KG, UNK
     Route: 065
  3. KANUMA [Suspect]
     Active Substance: SEBELIPASE ALFA
     Indication: LYSOSOMAL ACID LIPASE DEFICIENCY
     Dosage: UNK, QW
     Route: 042
  4. KANUMA [Suspect]
     Active Substance: SEBELIPASE ALFA
     Dosage: 3 MG/KG, UNK
     Route: 065

REACTIONS (11)
  - Anti-transglutaminase antibody increased [Unknown]
  - Speech disorder developmental [Unknown]
  - Abdominal distension [Unknown]
  - Psychomotor skills impaired [Unknown]
  - Anaemia [Recovered/Resolved]
  - Hypothyroidism [Unknown]
  - Feeding disorder [Unknown]
  - Pyrexia [Unknown]
  - Weight gain poor [Unknown]
  - Eosinophilia [Recovered/Resolved]
  - Adrenal insufficiency [Unknown]
